FAERS Safety Report 12355372 (Version 1)
Quarter: 2016Q2

REPORT INFORMATION
  Report Type: Spontaneous
  Country: US (occurrence: US)
  Receive Date: 20160511
  Receipt Date: 20160511
  Transmission Date: 20160815
  Serious: No
  Sender: FDA-Public Use
  Company Number: GXBR2016US000801

PATIENT
  Sex: Female

DRUGS (3)
  1. CLOMIPRAMINE HYDROCHLORIDE. [Suspect]
     Active Substance: CLOMIPRAMINE HYDROCHLORIDE
     Indication: PRODUCT USED FOR UNKNOWN INDICATION
     Dosage: 80 MG, ONCE/SINGLE
     Route: 048
     Dates: start: 20160225, end: 20160225
  2. IBUPROFEN. [Suspect]
     Active Substance: IBUPROFEN
     Indication: PAIN
     Dosage: 600 MG, TID
     Route: 048
     Dates: start: 20160225
  3. TRAMADOL. [Concomitant]
     Active Substance: TRAMADOL
     Indication: PAIN
     Dosage: 50 MG, PRN
     Route: 048
     Dates: start: 20160225

REACTIONS (2)
  - Vomiting [Recovered/Resolved]
  - Accidental exposure to product [Recovered/Resolved]

NARRATIVE: CASE EVENT DATE: 20160225
